FAERS Safety Report 22116595 (Version 1)
Quarter: 2023Q1

REPORT INFORMATION
  Report Type: Spontaneous
  Country: RU (occurrence: None)
  Receive Date: 20230320
  Receipt Date: 20230320
  Transmission Date: 20230418
  Serious: Yes (Other)
  Sender: FDA-Public Use
  Company Number: 2023A065324

PATIENT
  Age: 56 Year
  Sex: Female

DRUGS (12)
  1. ANASTROZOLE [Suspect]
     Active Substance: ANASTROZOLE
     Indication: Breast cancer female
     Route: 048
     Dates: start: 201312, end: 201504
  2. FULVESTRANT [Suspect]
     Active Substance: FULVESTRANT
     Indication: Breast cancer female
     Route: 030
     Dates: start: 201607, end: 201801
  3. FULVESTRANT [Suspect]
     Active Substance: FULVESTRANT
     Indication: Breast cancer female
     Dosage: UNKNOWN
     Route: 030
  4. FULVESTRANT [Suspect]
     Active Substance: FULVESTRANT
     Indication: Breast cancer female
     Route: 030
     Dates: start: 20211213
  5. TAMOXIFEN [Suspect]
     Active Substance: TAMOXIFEN
     Indication: Breast cancer
     Route: 048
     Dates: end: 201312
  6. PALBOCICLIB [Suspect]
     Active Substance: PALBOCICLIB
  7. PACLITAXEL [Concomitant]
     Active Substance: PACLITAXEL
     Dosage: EIGHT WEEKLY INJECTIONS-AT A DOSE OF 80 MG/M2
  8. RIBOCICLIB [Concomitant]
     Active Substance: RIBOCICLIB
     Dates: start: 202004, end: 202101
  9. ALPELISIB [Concomitant]
     Active Substance: ALPELISIB
     Dosage: 300 MG/DAY
     Dates: start: 202104
  10. ALPELISIB [Concomitant]
     Active Substance: ALPELISIB
     Dosage: 300 MG/DAY
     Dates: start: 20211213
  11. EMPAGLIFLOZIN [Concomitant]
     Active Substance: EMPAGLIFLOZIN
     Dosage: 25 MG.
  12. METFORMIN [Concomitant]
     Active Substance: METFORMIN HYDROCHLORIDE
     Dosage: 2000 MG/DAY

REACTIONS (3)
  - Malignant neoplasm progression [Unknown]
  - Hyperglycaemia [Unknown]
  - Metastases to lung [Unknown]
